FAERS Safety Report 4822900-0 (Version None)
Quarter: 2005Q4

REPORT INFORMATION
  Report Type: 
  Country: None (occurrence: None)
  Receive Date: 20051104
  Receipt Date: 20051019
  Transmission Date: 20060501
  Serious: Yes (Other)
  Sender: FDA-Public Use
  Company Number: DSA_25182_2004

PATIENT
  Age: 50 Year
  Sex: Female
  Weight: 61.6892 kg

DRUGS (4)
  1. ATIVAN [Suspect]
     Indication: ANXIETY
     Dosage: 1 MG TID PO
     Route: 048
     Dates: start: 19800101
  2. ATIVAN [Suspect]
     Indication: GASTROINTESTINAL DISORDER
     Dosage: 1 MG TID PO
     Route: 048
     Dates: start: 19800101
  3. ATIVAN [Suspect]
     Indication: ANXIETY
     Dosage: 0.5 MG TID PO
     Route: 048
  4. ATIVAN [Suspect]
     Indication: GASTROINTESTINAL DISORDER
     Dosage: 0.5 MG TID PO
     Route: 048

REACTIONS (5)
  - AGITATION [None]
  - BREAST CANCER FEMALE [None]
  - CATARACT [None]
  - MEMORY IMPAIRMENT [None]
  - VISION BLURRED [None]
